FAERS Safety Report 25008746 (Version 3)
Quarter: 2025Q1

REPORT INFORMATION
  Report Type: Spontaneous
  Country: GB (occurrence: GB)
  Receive Date: 20250225
  Receipt Date: 20250321
  Transmission Date: 20250409
  Serious: Yes (Hospitalization, Other)
  Sender: TEVA
  Company Number: GB-MYLANLABS-2025M1012268

PATIENT
  Sex: Female

DRUGS (3)
  1. OLANZAPINE [Suspect]
     Active Substance: OLANZAPINE
     Indication: Product used for unknown indication
     Route: 065
  2. CLOZARIL [Suspect]
     Active Substance: CLOZAPINE
     Indication: Schizophrenia
     Route: 048
     Dates: start: 20090708
  3. CLOZARIL [Suspect]
     Active Substance: CLOZAPINE
     Indication: Schizophrenia
     Route: 065

REACTIONS (5)
  - Malaise [Unknown]
  - Off label use [Unknown]
  - Hallucination, auditory [Unknown]
  - Anaemia [Unknown]
  - Treatment noncompliance [Unknown]
